FAERS Safety Report 22226331 (Version 1)
Quarter: 2023Q2

REPORT INFORMATION
  Report Type: Spontaneous
  Country: US (occurrence: US)
  Receive Date: 20230419
  Receipt Date: 20230419
  Transmission Date: 20230721
  Serious: Yes (Hospitalization, Congenital Anomaly)
  Sender: FDA-Public Use
  Company Number: US-drreddys-LIT/USA/23/0163616

PATIENT
  Sex: Male
  Weight: 3.015 kg

DRUGS (1)
  1. VALGANCICLOVIR HYDROCHLORIDE [Suspect]
     Active Substance: VALGANCICLOVIR HYDROCHLORIDE
     Indication: Cytomegalovirus infection

REACTIONS (4)
  - Cerebral haemorrhage [Unknown]
  - Congenital skin disorder [Unknown]
  - Xanthogranuloma [Unknown]
  - Neutropenia [Recovering/Resolving]
